FAERS Safety Report 8283668-1 (Version None)
Quarter: 2012Q2

REPORT INFORMATION
  Report Type: 
  Country: None (occurrence: None)
  Receive Date: 20120413
  Receipt Date: 20120406
  Transmission Date: 20120825
  Serious: Yes (Hospitalization)
  Sender: FDA-Public Use
  Company Number: PHHY2012SI026932

PATIENT
  Sex: Female

DRUGS (11)
  1. NEURONTIN [Suspect]
     Indication: DEMENTIA ALZHEIMER'S TYPE
     Dosage: 2 TBL, DAILY
     Route: 048
  2. LORAZEPAM [Suspect]
     Indication: DEMENTIA ALZHEIMER'S TYPE
     Dosage: 3 TBL, DAILY
     Route: 048
  3. RISPERIDONE [Suspect]
     Indication: DEMENTIA ALZHEIMER'S TYPE
     Dosage: 0.5 TBL
     Route: 048
  4. FLUOXETINE [Suspect]
     Indication: DEMENTIA ALZHEIMER'S TYPE
     Dosage: 2 TBL, DAILY
     Route: 048
  5. EXELON [Suspect]
     Indication: DEMENTIA ALZHEIMER'S TYPE
     Dosage: 6 MG, BID
     Route: 048
  6. PROMAZINE HYDROCHLORIDE [Suspect]
     Indication: DEMENTIA ALZHEIMER'S TYPE
     Dosage: 25 MG, UNK
     Route: 048
  7. VALSACOR [Concomitant]
     Dosage: 80 MG, UNK
  8. BUPRENORPHINE [Concomitant]
     Dosage: 35 UG, UNK
  9. ZOLPIDEM TARTRATE [Suspect]
     Indication: DEMENTIA ALZHEIMER'S TYPE
     Dosage: 20 MG, UNK
     Route: 048
  10. BERODUAL [Concomitant]
     Dosage: UNK UKN, UNK
  11. LANTREA [Concomitant]
     Dosage: 30 MG, UNK

REACTIONS (2)
  - PNEUMONIA ASPIRATION [None]
  - SOMNOLENCE [None]
